FAERS Safety Report 9773432 (Version 1)
Quarter: 2013Q4

REPORT INFORMATION
  Report Type: Report from Study
  Country: BR (occurrence: BR)
  Receive Date: 20131219
  Receipt Date: 20131219
  Transmission Date: 20140711
  Serious: Yes (Other)
  Sender: FDA-Public Use
  Company Number: PHHY2013BR149030

PATIENT
  Age: 73 Year
  Sex: Female
  Weight: 61 kg

DRUGS (6)
  1. ACLASTA [Suspect]
     Indication: OSTEOPOROSIS
     Dosage: 5 MG, UNK
     Route: 042
     Dates: start: 2012
  2. ROSUCOR [Concomitant]
     Indication: BLOOD CHOLESTEROL INCREASED
     Dosage: 5 MG (TABLET), DAILY
     Route: 048
  3. DIOVAN [Concomitant]
     Indication: THYROID OPERATION
     Dosage: 75 MG (1 TABLET), TABLET
     Route: 048
  4. ASPIRIN [Concomitant]
     Indication: ANTICOAGULANT THERAPY
     Dosage: 1 DF, DAILY
     Route: 048
  5. ARTRO [Concomitant]
     Indication: BONE PAIN
     Dosage: 1 DF, DAILY
     Route: 048
     Dates: start: 2012
  6. EUTHYROX [Concomitant]
     Dosage: UNK UKN, UNK

REACTIONS (9)
  - Abdominal hernia [Recovered/Resolved]
  - Cholelithiasis [Recovered/Resolved]
  - Local swelling [Recovering/Resolving]
  - Cough [Not Recovered/Not Resolved]
  - Back pain [Not Recovered/Not Resolved]
  - Influenza [Recovering/Resolving]
  - Pain in extremity [Recovering/Resolving]
  - Erythema [Recovering/Resolving]
  - Headache [Not Recovered/Not Resolved]
